FAERS Safety Report 5726646-6 (Version None)
Quarter: 2008Q2

REPORT INFORMATION
  Report Type: 
  Country: None (occurrence: None)
  Receive Date: 20080502
  Receipt Date: 20080428
  Transmission Date: 20081010
  Serious: Yes (Hospitalization, Other)
  Sender: FDA-Public Use
  Company Number: PHFR2007GB01803

PATIENT
  Age: 45 Year
  Sex: Male

DRUGS (3)
  1. CLOZARIL [Suspect]
     Indication: SCHIZOPHRENIA
     Dosage: 100MG AM / 500MG PM
     Route: 048
     Dates: start: 20000516
  2. CLOZARIL [Suspect]
     Dosage: 500 MG/DAY
     Route: 048
  3. VALPROATE SODIUM [Concomitant]

REACTIONS (7)
  - DRUG LEVEL INCREASED [None]
  - FALL [None]
  - GAIT DISTURBANCE [None]
  - GRAND MAL CONVULSION [None]
  - HEAD INJURY [None]
  - MALAISE [None]
  - SALIVARY HYPERSECRETION [None]
